FAERS Safety Report 16094251 (Version 1)
Quarter: 2019Q1

REPORT INFORMATION
  Report Type: Spontaneous
  Country: FR (occurrence: FR)
  Receive Date: 20190320
  Receipt Date: 20190320
  Transmission Date: 20190418
  Serious: Yes (Hospitalization)
  Sender: FDA-Public Use
  Company Number: FR-ACCORD-114403

PATIENT
  Age: 41 Year
  Sex: Female
  Weight: 53 kg

DRUGS (4)
  1. MYCOPHENOLIC ACID. [Suspect]
     Active Substance: MYCOPHENOLIC ACID
     Indication: PROPHYLAXIS AGAINST TRANSPLANT REJECTION
     Dosage: 500 MG, QD
     Dates: start: 200606, end: 20110412
  2. ORELOX [Suspect]
     Active Substance: CEFPODOXIME
     Indication: SINUSITIS
     Dosage: UNK
     Route: 048
     Dates: start: 20110408
  3. VALACICLOVIR [Suspect]
     Active Substance: VALACYCLOVIR HYDROCHLORIDE
     Indication: ORAL HERPES
     Dosage: UNK
     Route: 048
     Dates: start: 20110409
  4. PROGRAF [Concomitant]
     Active Substance: TACROLIMUS\TACROLIMUS ANHYDROUS
     Dosage: UNK, BID-3 MG MORNING AND 2.5 MG EVENING 5.5 MG
     Dates: start: 200606

REACTIONS (1)
  - Agranulocytosis [Recovered/Resolved]

NARRATIVE: CASE EVENT DATE: 20110412
